FAERS Safety Report 4916697-3 (Version None)
Quarter: 2006Q1

REPORT INFORMATION
  Report Type: 
  Country: None (occurrence: None)
  Receive Date: 20060113
  Receipt Date: 20051012
  Transmission Date: 20060701
  Serious: No
  Sender: FDA-Public Use
  Company Number: 2005SP003481

PATIENT
  Age: 70 Year
  Sex: Female
  Weight: 45.3597 kg

DRUGS (6)
  1. LUNESTA [Suspect]
     Indication: INSOMNIA
     Dosage: 2 MG;HS;ORAL, 3 MG;HS;ORAL
     Route: 048
     Dates: start: 20050501, end: 20050501
  2. LUNESTA [Suspect]
     Indication: INSOMNIA
     Dosage: 2 MG;HS;ORAL, 3 MG;HS;ORAL
     Route: 048
     Dates: start: 20051003, end: 20051001
  3. CLORAZEPATE DIPOTASSIUM [Concomitant]
  4. PREMARIN [Concomitant]
  5. DOXYCYCLINE [Concomitant]
  6. AXID [Concomitant]

REACTIONS (9)
  - ABDOMINAL PAIN UPPER [None]
  - BACK PAIN [None]
  - DIZZINESS [None]
  - DRUG INEFFECTIVE [None]
  - DRY EYE [None]
  - DRY MOUTH [None]
  - HEADACHE [None]
  - INSOMNIA [None]
  - NASAL DRYNESS [None]
